APPROVED DRUG PRODUCT: PEMETREXED
Active Ingredient: PEMETREXED
Strength: 500MG/20ML (25MG/ML)
Dosage Form/Route: SOLUTION;INTRAVENOUS
Application: N208419 | Product #002
Applicant: ACTAVIS LLC AN INDIRECT WHOLLY OWNED SUB OF TEVA PHARMACEUTICALS USA INC
Approved: Aug 21, 2020 | RLD: Yes | RS: Yes | Type: RX